FAERS Safety Report 17586647 (Version 1)
Quarter: 2020Q1

REPORT INFORMATION
  Report Type: Spontaneous
  Country: US (occurrence: US)
  Receive Date: 20200326
  Receipt Date: 20200326
  Transmission Date: 20200409
  Serious: Yes (Hospitalization)
  Sender: FDA-Public Use
  Company Number: US-ASTRAZENECA-2020SE41219

PATIENT
  Sex: Female

DRUGS (7)
  1. K-DUR [Concomitant]
     Active Substance: POTASSIUM CHLORIDE
  2. NEXIUM [Suspect]
     Active Substance: ESOMEPRAZOLE MAGNESIUM
     Indication: GASTROOESOPHAGEAL REFLUX DISEASE
     Dosage: 40
     Route: 048
  3. SYMBICORT [Suspect]
     Active Substance: BUDESONIDE\FORMOTEROL FUMARATE DIHYDRATE
     Indication: ASTHMA
     Dosage: 80UG/INHAL, TWO TIMES A DAY
     Route: 055
  4. NEXIUM [Concomitant]
     Active Substance: ESOMEPRAZOLE MAGNESIUM
     Dosage: 40
  5. SYMBICORT [Suspect]
     Active Substance: BUDESONIDE\FORMOTEROL FUMARATE DIHYDRATE
     Indication: BRONCHITIS
     Dosage: 80UG/INHAL, TWO TIMES A DAY
     Route: 055
  6. DIOVAN [Concomitant]
     Active Substance: VALSARTAN
     Dosage: 160
  7. BABY ASPIRIN [Concomitant]
     Active Substance: ASPIRIN

REACTIONS (9)
  - Musculoskeletal stiffness [Unknown]
  - Speech disorder [Unknown]
  - Dysphagia [Unknown]
  - Sepsis [Unknown]
  - Intentional product misuse [Unknown]
  - Device issue [Unknown]
  - Product dose omission [Unknown]
  - Cataract [Unknown]
  - Malaise [Unknown]
